FAERS Safety Report 5852911-8 (Version None)
Quarter: 2008Q3

REPORT INFORMATION
  Report Type: 
  Country: None (occurrence: None)
  Receive Date: 20080821
  Receipt Date: 20080819
  Transmission Date: 20090109
  Serious: Yes (Hospitalization, Other)
  Sender: FDA-Public Use
  Company Number: PHEH2008US01523

PATIENT
  Sex: Female
  Weight: 67.12 kg

DRUGS (9)
  1. SANDOSTATIN LAR [Suspect]
     Indication: CARCINOID SYNDROME
     Dosage: 60 MG, Q28DAYS
     Route: 030
     Dates: start: 20060501
  2. LOPRESSOR [Concomitant]
     Dosage: 50 MG, BID
     Route: 048
  3. SYNTHROID [Concomitant]
     Dosage: 0.088 MG, QHS
     Route: 048
  4. CALCIUM [Concomitant]
     Dosage: 1500 MG, QD
     Route: 048
  5. ATIVAN [Concomitant]
     Dosage: 1 MG, QHS PRN
     Route: 048
  6. ASPIRIN [Concomitant]
     Dosage: 81 MG, QD
     Route: 048
  7. ONE-A-DAY WOMEN'S [Concomitant]
     Dosage: UNK
     Route: 048
  8. AMYLASE/LIPASE/PROTEASE [Concomitant]
     Dosage: 8000 U, 1-4 WITH EVERY SNACK AND MEAL
  9. CORRECTOL ^SCHERING-PLOUGH^ [Concomitant]
     Dosage: UNK

REACTIONS (13)
  - CHOLECYSTECTOMY [None]
  - CHOLELITHIASIS [None]
  - DRUG ADMINISTRATION ERROR [None]
  - FLUSHING [None]
  - INCISIONAL HERNIA [None]
  - INCISIONAL HERNIA REPAIR [None]
  - INJECTION SITE MOVEMENT IMPAIRMENT [None]
  - INJECTION SITE NODULE [None]
  - INJECTION SITE PAIN [None]
  - METASTASES TO LYMPH NODES [None]
  - OMENTUM NEOPLASM [None]
  - PANCREATIC CARCINOMA [None]
  - SURGERY [None]
